FAERS Safety Report 4511723-8 (Version None)
Quarter: 2004Q4

REPORT INFORMATION
  Report Type: 
  Country: None (occurrence: None)
  Receive Date: 20041129
  Receipt Date: 20041115
  Transmission Date: 20050328
  Serious: Yes (Hospitalization)
  Sender: FDA-Public Use
  Company Number: 200414289FR

PATIENT
  Age: 86 Year
  Sex: Female

DRUGS (6)
  1. LASILIX [Suspect]
     Route: 048
     Dates: end: 20040101
  2. IKOREL [Concomitant]
  3. VASTAREL [Concomitant]
  4. MOPRAL [Concomitant]
  5. DIAFUSOR [Concomitant]
  6. ZOLOFT [Concomitant]

REACTIONS (4)
  - CONFUSIONAL STATE [None]
  - HEADACHE [None]
  - HYPOKALAEMIA [None]
  - HYPONATRAEMIA [None]
